FAERS Safety Report 5599899-5 (Version None)
Quarter: 2008Q1

REPORT INFORMATION
  Report Type: 
  Country: None (occurrence: None)
  Receive Date: 20080123
  Receipt Date: 20080107
  Transmission Date: 20080703
  Serious: Yes (Death, Hospitalization)
  Sender: FDA-Public Use
  Company Number: JP-ELI_LILLY_AND_COMPANY-JP200711003401

PATIENT
  Sex: Male
  Weight: 68.6 kg

DRUGS (9)
  1. PEMETREXED [Suspect]
     Indication: PLEURAL MESOTHELIOMA MALIGNANT
     Dosage: 500 MG/M2, OTHER
     Route: 042
     Dates: start: 20070807
  2. CISPLATIN [Suspect]
     Indication: PLEURAL MESOTHELIOMA MALIGNANT
     Dosage: 60 MG/M2, OTHER
     Route: 042
     Dates: start: 20070807
  3. CISPLATIN [Suspect]
     Dosage: 30 MG/M2, OTHER
     Route: 042
     Dates: start: 20070904
  4. PANVITAN [Concomitant]
     Dosage: 0.5 MG, DAILY (1/D)
     Route: 048
     Dates: start: 20070730
  5. MASBLON H [Concomitant]
     Dosage: 1 MG, DAILY (1/D)
     Route: 030
     Dates: start: 20070730, end: 20070730
  6. MASBLON H [Concomitant]
     Dosage: 1 MG, DAILY (1/D)
     Route: 030
     Dates: start: 20071011, end: 20071011
  7. KYTRIL [Concomitant]
     Indication: PROPHYLAXIS
     Dosage: 300 MG, AS NEEDED
     Route: 042
     Dates: start: 20070807
  8. ZANTAC [Concomitant]
     Indication: PROPHYLAXIS
     Dosage: 500 MG, DAILY (1/D)
     Route: 048
     Dates: start: 20070807
  9. DECADRON                                /CAN/ [Concomitant]
     Indication: PROPHYLAXIS
     Dosage: 8 MG, AS NEEDED
     Route: 042
     Dates: start: 20070807

REACTIONS (2)
  - INTERSTITIAL LUNG DISEASE [None]
  - VOMITING [None]
